FAERS Safety Report 14176250 (Version 6)
Quarter: 2018Q1

REPORT INFORMATION
  Report Type: Report from Study
  Country: ES (occurrence: ES)
  Receive Date: 20171109
  Receipt Date: 20180119
  Transmission Date: 20180508
  Serious: Yes (Death, Hospitalization)
  Sender: FDA-Public Use
  Company Number: ES-B.I. PHARMACEUTICALS,INC./RIDGEFIELD-2017-BI-059644

PATIENT
  Age: 77 Year
  Sex: Male
  Weight: 53.5 kg

DRUGS (6)
  1. PLACEBO [Suspect]
     Active Substance: UNSPECIFIED INGREDIENT
     Indication: IDIOPATHIC PULMONARY FIBROSIS
     Route: 048
     Dates: start: 20170524
  2. PANTOPRAZOL [Concomitant]
     Active Substance: PANTOPRAZOLE SODIUM
     Indication: DYSPEPSIA
     Route: 048
  3. DACORTIN [Concomitant]
     Active Substance: PREDNISONE
     Indication: ARTHRALGIA
     Route: 048
  4. ARKOLEVURE [Concomitant]
     Indication: ROUTINE HEALTH MAINTENANCE
     Route: 048
     Dates: start: 20170808
  5. NINTEDANIB [Suspect]
     Active Substance: NINTEDANIB
     Indication: IDIOPATHIC PULMONARY FIBROSIS
     Route: 048
     Dates: start: 20170524, end: 20171102
  6. ACTONEL [Concomitant]
     Active Substance: RISEDRONATE SODIUM
     Indication: ARTHRALGIA
     Dosage: 35 MG WEEKLY
     Route: 048

REACTIONS (7)
  - Dyspnoea [Recovered/Resolved with Sequelae]
  - Dehydration [Recovered/Resolved]
  - Dyspnoea [Fatal]
  - Haematuria [Recovered/Resolved]
  - Hypophagia [Recovered/Resolved]
  - Urinary retention [Not Recovered/Not Resolved]
  - Haematuria [Recovered/Resolved]

NARRATIVE: CASE EVENT DATE: 20171102
